FAERS Safety Report 24767151 (Version 1)
Quarter: 2024Q4

REPORT INFORMATION
  Report Type: Report from Study
  Country: BR (occurrence: BR)
  Receive Date: 20241223
  Receipt Date: 20241223
  Transmission Date: 20250115
  Serious: Yes (Other)
  Sender: TEVA
  Company Number: BR-TEVA-VS-3276775

PATIENT
  Age: 47 Year
  Sex: Female

DRUGS (1)
  1. AJOVY [Suspect]
     Active Substance: FREMANEZUMAB-VFRM
     Indication: Migraine
     Dosage: 225 MG ONCE EVERY MONTH
     Route: 065
     Dates: start: 20241114

REACTIONS (5)
  - Mental impairment [Unknown]
  - Diarrhoea [Unknown]
  - Dizziness [Recovering/Resolving]
  - Migraine [Recovered/Resolved]
  - Inappropriate schedule of product administration [Unknown]

NARRATIVE: CASE EVENT DATE: 20241201
